FAERS Safety Report 9475352 (Version 1)
Quarter: 2013Q3

REPORT INFORMATION
  Report Type: Spontaneous
  Country: US (occurrence: US)
  Receive Date: 20130826
  Receipt Date: 20130826
  Transmission Date: 20140515
  Serious: No
  Sender: FDA-Public Use
  Company Number: US-BIOGENIDEC-2011BI018601

PATIENT
  Age: 46 Year
  Sex: Male

DRUGS (2)
  1. AVONEX [Suspect]
     Indication: MULTIPLE SCLEROSIS
     Route: 030
     Dates: start: 20110324
  2. ABILIFY [Concomitant]
     Indication: DEPRESSION

REACTIONS (8)
  - Depression [Recovered/Resolved]
  - Influenza like illness [Recovered/Resolved]
  - Somnambulism [Unknown]
  - Loss of consciousness [Unknown]
  - Incontinence [Unknown]
  - Thirst [Unknown]
  - Muscular weakness [Unknown]
  - Arthralgia [Unknown]
